FAERS Safety Report 9158203 (Version 2)
Quarter: 2013Q1

REPORT INFORMATION
  Report Type: Spontaneous
  Country: US (occurrence: US)
  Receive Date: 20130312
  Receipt Date: 20130318
  Transmission Date: 20140127
  Serious: Yes (Hospitalization)
  Sender: FDA-Public Use
  Company Number: US-ROCHE-1200799

PATIENT
  Age: 66 Year
  Sex: Male
  Weight: 64.47 kg

DRUGS (8)
  1. PEGASYS [Suspect]
     Indication: CHRONIC HEPATITIS C
     Route: 058
     Dates: start: 20121208
  2. RIBAPAK [Suspect]
     Indication: CHRONIC HEPATITIS C
     Route: 048
     Dates: start: 20121208
  3. RIBAPAK [Suspect]
     Route: 048
     Dates: start: 20130216
  4. RIBAPAK [Suspect]
     Route: 048
     Dates: start: 20121103
  5. TELAPREVIR [Suspect]
     Indication: CHRONIC HEPATITIS C
     Route: 065
     Dates: start: 20121208, end: 20130224
  6. NORVASC [Concomitant]
     Route: 065
  7. LISINOPRIL [Concomitant]
  8. GLYBURIDE [Concomitant]

REACTIONS (4)
  - Confusional state [Recovered/Resolved]
  - Dysarthria [Recovered/Resolved]
  - Blood glucose abnormal [Unknown]
  - Anaemia [Unknown]
